FAERS Safety Report 14212762 (Version 2)
Quarter: 2017Q4

REPORT INFORMATION
  Report Type: Spontaneous
  Country: BR (occurrence: BR)
  Receive Date: 20171122
  Receipt Date: 20171129
  Transmission Date: 20180321
  Serious: Yes (Hospitalization)
  Sender: FDA-Public Use
  Company Number: BR-PFIZER INC-2017500691

PATIENT
  Age: 69 Year
  Sex: Female

DRUGS (17)
  1. CENTRUM SELECT MULHER [Suspect]
     Active Substance: VITAMINS
     Indication: ASTHENIA
     Dosage: 1 DF (TABLET), DAILY
     Dates: start: 2007
  2. PRAVASTATIN. [Concomitant]
     Active Substance: PRAVASTATIN
     Dosage: UNK
  3. CRESTOR [Concomitant]
     Active Substance: ROSUVASTATIN CALCIUM
     Dosage: UNK
  4. VITAMIN B12 /07503801/ [Concomitant]
     Dosage: UNK
  5. FRONTAL [Suspect]
     Active Substance: ALPRAZOLAM
     Indication: TINNITUS
     Dosage: 2 MG, 2X/DAY (2MG IN THE MORNING AND 2MG IN THE AFTERNOON)
     Dates: end: 20170429
  6. TRULICITY [Concomitant]
     Active Substance: DULAGLUTIDE
     Dosage: UNK
  7. SYNTHROID [Concomitant]
     Active Substance: LEVOTHYROXINE SODIUM
     Dosage: UNK
  8. DIAMICRON [Concomitant]
     Active Substance: GLICLAZIDE
     Dosage: UNK
  9. ATACAND COMB [Concomitant]
     Active Substance: CANDESARTAN CILEXETIL\FELODIPINE
     Dosage: UNK
  10. MODURETIC 5-50 [Concomitant]
     Active Substance: AMILORIDE HYDROCHLORIDE\HYDROCHLOROTHIAZIDE
     Dosage: UNK
  11. JANUMET [Concomitant]
     Active Substance: METFORMIN HYDROCHLORIDE\SITAGLIPTIN PHOSPHATE
     Dosage: UNK
  12. INSULIN [Concomitant]
     Active Substance: INSULIN NOS
     Dosage: UNK
  13. LEXAPRO [Concomitant]
     Active Substance: ESCITALOPRAM OXALATE
     Dosage: UNK
  14. ADDERA D3 [Concomitant]
     Active Substance: CHOLECALCIFEROL
     Dosage: UNK
  15. BETASERC /00141801/ [Concomitant]
     Active Substance: BETAHISTINE
     Dosage: UNK
  16. FRONTAL [Suspect]
     Active Substance: ALPRAZOLAM
     Indication: ANXIETY
     Dosage: 2 MG, 2X/DAY (2MG IN THE MORNING AND 2MG IN THE AFTERNOON)
  17. HUMALOG [Concomitant]
     Active Substance: INSULIN LISPRO
     Dosage: UNK

REACTIONS (3)
  - Herpes virus infection [Recovered/Resolved]
  - Insomnia [None]
  - Anxiety [None]

NARRATIVE: CASE EVENT DATE: 20170422
